FAERS Safety Report 7546988-1 (Version None)
Quarter: 2011Q2

REPORT INFORMATION
  Report Type: 
  Country: None (occurrence: None)
  Receive Date: 20110614
  Receipt Date: 20110606
  Transmission Date: 20111010
  Serious: Yes (Other)
  Sender: FDA-Public Use
  Company Number: PHHY2011GB48977

PATIENT
  Sex: Male

DRUGS (3)
  1. SIMVASTATIN [Concomitant]
     Indication: BLOOD CHOLESTEROL INCREASED
     Dosage: 40 MG, UNK
     Route: 048
     Dates: start: 20090119
  2. CHANTIX [Interacting]
     Indication: SMOKING CESSATION THERAPY
     Dosage: 1 G, BID
     Dates: start: 20101116, end: 20101130
  3. WARFARIN SODIUM [Suspect]
     Dosage: 6 MG, QD

REACTIONS (6)
  - ANAEMIA [None]
  - DRUG WITHDRAWAL SYNDROME [None]
  - INCREASED TENDENCY TO BRUISE [None]
  - INTERNATIONAL NORMALISED RATIO INCREASED [None]
  - DRUG INTERACTION [None]
  - HAEMOGLOBIN DECREASED [None]
